FAERS Safety Report 4375773-7 (Version None)
Quarter: 2004Q2

REPORT INFORMATION
  Report Type: 
  Country: None (occurrence: None)
  Receive Date: 20040610
  Receipt Date: 20040602
  Transmission Date: 20050107
  Serious: Yes (Life-Threatening, Hospitalization)
  Sender: FDA-Public Use
  Company Number: US-MERCK-0406USA00271

PATIENT
  Sex: Female

DRUGS (1)
  1. VIOXX [Suspect]
     Indication: POST PROCEDURAL PAIN
     Route: 048

REACTIONS (1)
  - ACUTE RESPIRATORY DISTRESS SYNDROME [None]
